FAERS Safety Report 24006076 (Version 1)
Quarter: 2024Q2

REPORT INFORMATION
  Report Type: Spontaneous
  Country: US (occurrence: None)
  Receive Date: 20240622
  Receipt Date: 20240622
  Transmission Date: 20240716
  Serious: Yes (Hospitalization)
  Sender: FDA-Public Use
  Company Number: None

PATIENT
  Age: 95 Year
  Sex: Male
  Weight: 80 kg

DRUGS (2)
  1. MOXIFLOXACIN [Suspect]
     Active Substance: MOXIFLOXACIN
     Indication: Pneumonia
     Dosage: 400 MG ONCE PO
     Route: 048
     Dates: start: 20240613, end: 20240613
  2. LEVOFLOXACIN INJECTION IN 5% DEXTROSE [Suspect]
     Active Substance: LEVOFLOXACIN
     Dosage: 500 MG ONCE IV
     Route: 042
     Dates: start: 20240612, end: 20240612

REACTIONS (2)
  - Confusional state [None]
  - Hallucination [None]

NARRATIVE: CASE EVENT DATE: 20240614
